FAERS Safety Report 10487283 (Version 1)
Quarter: 2014Q3

REPORT INFORMATION
  Report Type: Spontaneous
  Country: US (occurrence: None)
  Receive Date: 20140908
  Receipt Date: 20140908
  Transmission Date: 20150326
  Serious: Yes (Hospitalization)
  Sender: FDA-Public Use
  Company Number: 409495

PATIENT
  Age: 48 Year
  Sex: Female
  Weight: 98.9 kg

DRUGS (14)
  1. KEPPRA [Concomitant]
     Active Substance: LEVETIRACETAM
  2. SINEMET [Concomitant]
     Active Substance: CARBIDOPA\LEVODOPA
  3. VICTOZA [Suspect]
     Active Substance: LIRAGLUTIDE
     Indication: TYPE 2 DIABETES MELLITUS
     Route: 058
     Dates: start: 201403, end: 20140419
  4. LASIX [Concomitant]
     Active Substance: FUROSEMIDE
  5. REFRESH (CARMELLOSE) [Concomitant]
  6. REQUIP [Concomitant]
     Active Substance: ROPINIROLE HYDROCHLORIDE
  7. SPRIX (KETOROLAC TROMETHAMINE) [Concomitant]
  8. MAXALT (RIZATRIPTAN BENZOATE) [Concomitant]
     Active Substance: RIZATRIPTAN BENZOATE
  9. RESTASIS (CICLOSPORIN) [Concomitant]
  10. METFORMIN [Concomitant]
     Active Substance: METFORMIN HYDROCHLORIDE
  11. PRISTIQ (DESVENLAFAXINE SUCCINATE) [Concomitant]
     Active Substance: DESVENLAFAXINE SUCCINATE
  12. VITAMIN D (ERGOCALCIFEROL) [Concomitant]
     Active Substance: ERGOCALCIFEROL
  13. TRIMETHOBENZAMIDE (TRIMETHOBENZAMIDE) [Concomitant]
  14. XANAX [Concomitant]
     Active Substance: ALPRAZOLAM

REACTIONS (7)
  - Chills [None]
  - Pancreatitis acute [None]
  - Dyspepsia [None]
  - Diarrhoea [None]
  - Nausea [None]
  - Pyrexia [None]
  - Haemoglobin increased [None]

NARRATIVE: CASE EVENT DATE: 20140327
